FAERS Safety Report 5326571-9 (Version None)
Quarter: 2007Q2

REPORT INFORMATION
  Report Type: 
  Country: None (occurrence: None)
  Receive Date: 20070516
  Receipt Date: 20070504
  Transmission Date: 20071010
  Serious: Yes (Other)
  Sender: FDA-Public Use
  Company Number: FR-PFIZER INC-2007037307

PATIENT
  Age: 17 Year
  Sex: Male

DRUGS (1)
  1. REVATIO [Suspect]

REACTIONS (3)
  - DERMATITIS [None]
  - DRY SKIN [None]
  - PAINFUL ERECTION [None]
